FAERS Safety Report 5440824-5 (Version None)
Quarter: 2007Q3

REPORT INFORMATION
  Report Type: 
  Country: None (occurrence: None)
  Receive Date: 20070831
  Receipt Date: 20070828
  Transmission Date: 20080115
  Serious: Yes (Other)
  Sender: FDA-Public Use
  Company Number: US-MERCK-0702USA03849

PATIENT
  Age: 76 Year
  Sex: Female

DRUGS (7)
  1. JANUVIA [Suspect]
     Route: 048
     Dates: start: 20070111, end: 20070116
  2. JANUVIA [Suspect]
     Route: 048
     Dates: start: 20070101
  3. ACTOS [Concomitant]
     Route: 065
     Dates: end: 20070101
  4. AMARYL [Concomitant]
     Route: 065
  5. GLUCOPHAGE [Concomitant]
     Route: 065
  6. IRON (UNSPECIFIED) [Concomitant]
     Route: 065
  7. ESTROGENS (UNSPECIFIED) [Concomitant]
     Route: 065

REACTIONS (5)
  - DIARRHOEA [None]
  - DIZZINESS [None]
  - FEELING ABNORMAL [None]
  - HEADACHE [None]
  - NAUSEA [None]
